FAERS Safety Report 8901900 (Version 1)
Quarter: 2012Q4

REPORT INFORMATION
  Report Type: Spontaneous
  Country: US (occurrence: None)
  Receive Date: 20121109
  Receipt Date: 20121109
  Transmission Date: 20130627
  Serious: Yes (Hospitalization)
  Sender: FDA-Public Use
  Company Number: None

PATIENT
  Sex: Male
  Weight: 71 kg

DRUGS (1)
  1. CETUXIMAB [Suspect]

REACTIONS (7)
  - Mucosal inflammation [None]
  - Dysphagia [None]
  - Nausea [None]
  - Vomiting [None]
  - Retching [None]
  - Increased bronchial secretion [None]
  - Dehydration [None]
